FAERS Safety Report 13461844 (Version 1)
Quarter: 2017Q2

REPORT INFORMATION
  Report Type: Spontaneous
  Country: US (occurrence: US)
  Receive Date: 20170419
  Receipt Date: 20170419
  Transmission Date: 20170830
  Serious: No
  Sender: FDA-Public Use
  Company Number: None

PATIENT
  Sex: Female

DRUGS (1)
  1. IBRANCE [Suspect]
     Active Substance: PALBOCICLIB
     Indication: PRODUCT USED FOR UNKNOWN INDICATION
     Dosage: 125 MG DAILY FOR 21 DAYS ON AND 7 DAYS OFF PO
     Route: 048
     Dates: start: 20161004

REACTIONS (5)
  - Pain [None]
  - Bladder operation [None]
  - Unevaluable event [None]
  - Respiratory disorder [None]
  - Post procedural complication [None]
